FAERS Safety Report 6565208-8 (Version None)
Quarter: 2010Q1

REPORT INFORMATION
  Report Type: 
  Country: None (occurrence: None)
  Receive Date: 20100201
  Receipt Date: 20100122
  Transmission Date: 20100710
  Serious: Yes (Life-Threatening)
  Sender: FDA-Public Use
  Company Number: B0629937A

PATIENT
  Age: 37 Year
  Sex: Female
  Weight: 53 kg

DRUGS (2)
  1. AUGMENTIN '125' [Suspect]
     Indication: PROPHYLAXIS
     Dosage: 2.2G PER DAY
     Route: 042
     Dates: start: 20090209, end: 20090209
  2. MANNIT [Suspect]
     Indication: GASTRIC EMPTYING STUDY
     Route: 048

REACTIONS (8)
  - BLOOD CREATININE INCREASED [None]
  - CONDITION AGGRAVATED [None]
  - DEHYDRATION [None]
  - GENERAL PHYSICAL HEALTH DETERIORATION [None]
  - HAEMATURIA [None]
  - MEDICATION CRYSTALS IN URINE [None]
  - RENAL FAILURE ACUTE [None]
  - URINARY TRACT OBSTRUCTION [None]
